FAERS Safety Report 24780587 (Version 2)
Quarter: 2025Q2

REPORT INFORMATION
  Report Type: Spontaneous
  Country: DE (occurrence: DE)
  Receive Date: 20241227
  Receipt Date: 20250626
  Transmission Date: 20250717
  Serious: Yes (Hospitalization, Other)
  Sender: AUROBINDO
  Company Number: DE-002147023-PHHY2019DE071769

PATIENT
  Sex: Male

DRUGS (10)
  1. IBUPROFEN [Suspect]
     Active Substance: IBUPROFEN
     Indication: Product used for unknown indication
     Route: 065
     Dates: start: 20191101
  2. IBUPROFEN [Suspect]
     Active Substance: IBUPROFEN
     Route: 065
     Dates: start: 20230405
  3. IBUPROFEN [Suspect]
     Active Substance: IBUPROFEN
     Route: 065
     Dates: start: 20230405
  4. COSENTYX [Suspect]
     Active Substance: SECUKINUMAB
     Indication: Psoriatic arthropathy
     Route: 058
     Dates: start: 20180802, end: 20191115
  5. COSENTYX [Suspect]
     Active Substance: SECUKINUMAB
     Route: 058
     Dates: start: 20180802
  6. COSENTYX [Suspect]
     Active Substance: SECUKINUMAB
     Route: 058
     Dates: start: 20200115, end: 20200115
  7. ACEMETACIN [Concomitant]
     Active Substance: ACEMETACIN
     Indication: Product used for unknown indication
     Route: 065
     Dates: start: 20170301, end: 20191101
  8. ACEMETACIN [Concomitant]
     Active Substance: ACEMETACIN
     Route: 065
  9. ACEMETACIN [Concomitant]
     Active Substance: ACEMETACIN
     Route: 065
     Dates: start: 20170301, end: 20191101
  10. ACEMETACIN [Concomitant]
     Active Substance: ACEMETACIN
     Route: 065
     Dates: start: 20200727, end: 20211215

REACTIONS (15)
  - Meniscus injury [Not Recovered/Not Resolved]
  - Depression [Unknown]
  - Spinal osteoarthritis [Unknown]
  - Alcoholism [Unknown]
  - Alcohol poisoning [Unknown]
  - Suicidal ideation [Unknown]
  - Alcohol abuse [Unknown]
  - Intervertebral disc protrusion [Unknown]
  - Influenza like illness [Unknown]
  - Bronchitis [Unknown]
  - Tendon rupture [Unknown]
  - Contusion [Unknown]
  - Oedema peripheral [Unknown]
  - Osteoarthritis [Unknown]
  - Musculoskeletal discomfort [Unknown]

NARRATIVE: CASE EVENT DATE: 20190315
